FAERS Safety Report 15991438 (Version 1)
Quarter: 2019Q1

REPORT INFORMATION
  Report Type: Spontaneous
  Country: US (occurrence: US)
  Receive Date: 20190221
  Receipt Date: 20190221
  Transmission Date: 20190418
  Serious: Yes (Other)
  Sender: FDA-Public Use
  Company Number: US-PFIZER INC-2019062116

PATIENT
  Age: 28 Year
  Sex: Female
  Weight: 57.61 kg

DRUGS (1)
  1. CHAPSTICK CLASSIC STRAWBERRY [Suspect]
     Active Substance: PETROLATUM
     Indication: LIP DRY
     Dosage: UNK (1 APPLICATION TO LIPS ABOUT 3 TIMES TOTAL PER DAY)
     Dates: start: 201901, end: 20190131

REACTIONS (2)
  - Thermal burn [Recovering/Resolving]
  - Oral mucosal blistering [Recovering/Resolving]

NARRATIVE: CASE EVENT DATE: 20190131
